FAERS Safety Report 11468614 (Version 1)
Quarter: 2015Q3

REPORT INFORMATION
  Report Type: Spontaneous
  Country: US (occurrence: US)
  Receive Date: 20150908
  Receipt Date: 20150908
  Transmission Date: 20151125
  Serious: Yes (Other)
  Sender: FDA-Public Use
  Company Number: US-TAKEDA-2015TUS000591

PATIENT

DRUGS (8)
  1. METFORMIN [Concomitant]
     Active Substance: METFORMIN HYDROCHLORIDE
     Dosage: 2 - 1000 MG / DAY
     Dates: start: 200505
  2. BYETTA [Concomitant]
     Active Substance: EXENATIDE
     Dosage: 10 MCG / 0.04 ML
     Dates: start: 200603
  3. GLUCOPHAGE [Concomitant]
     Active Substance: METFORMIN HYDROCHLORIDE
     Dosage: 2 - 1000 MG / DAY
     Dates: start: 200505
  4. ACTOS [Suspect]
     Active Substance: PIOGLITAZONE HYDROCHLORIDE
     Indication: TYPE 2 DIABETES MELLITUS
     Dosage: 30 MG, UNK
     Route: 048
     Dates: start: 20070523, end: 20070622
  5. VICTOZA [Concomitant]
     Active Substance: LIRAGLUTIDE
     Indication: DIABETES MELLITUS
     Dosage: SHOT 18 MG / 3ML, QD
     Dates: start: 201301
  6. ACTOPLUS MET [Suspect]
     Active Substance: METFORMIN HYDROCHLORIDE\PIOGLITAZONE HYDROCHLORIDE
     Indication: TYPE 2 DIABETES MELLITUS
     Dosage: 15-850 MG, UNK
     Route: 048
     Dates: start: 20070630, end: 20120905
  7. ACTOPLUS MET [Suspect]
     Active Substance: METFORMIN HYDROCHLORIDE\PIOGLITAZONE HYDROCHLORIDE
     Dosage: 15-850 MG, UNK
     Route: 048
     Dates: start: 20120904, end: 20130703
  8. GLUCOTROL [Concomitant]
     Active Substance: GLIPIZIDE
     Dosage: 2 - 2.5 MG / DAY
     Dates: start: 200403

REACTIONS (1)
  - Bladder transitional cell carcinoma [Unknown]

NARRATIVE: CASE EVENT DATE: 20130715
